FAERS Safety Report 18247720 (Version 8)
Quarter: 2021Q3

REPORT INFORMATION
  Report Type: Spontaneous
  Country: JP (occurrence: JP)
  Receive Date: 20200909
  Receipt Date: 20210903
  Transmission Date: 20211014
  Serious: Yes (Death, Life-Threatening, Other)
  Sender: FDA-Public Use
  Company Number: JP-JNJFOC-20200902804

PATIENT
  Age: 65 Year
  Sex: Female
  Weight: 33 kg

DRUGS (14)
  1. OPSUMIT [Suspect]
     Active Substance: MACITENTAN
     Indication: PULMONARY HYPERTENSION
     Route: 048
     Dates: start: 20200403, end: 20200610
  2. SPIRONOLACTONE. [Concomitant]
     Active Substance: SPIRONOLACTONE
     Route: 065
  3. BISOPROLOL FUMARATE. [Concomitant]
     Active Substance: BISOPROLOL FUMARATE
     Indication: CONGESTIVE CARDIOMYOPATHY
  4. HEPARIN SODIUM. [Concomitant]
     Active Substance: HEPARIN SODIUM
     Route: 065
  5. XARELTO [Concomitant]
     Active Substance: RIVAROXABAN
  6. FERROUS CITRATE NA [Concomitant]
     Active Substance: SODIUM FERROUS CITRATE
  7. PIMOBENDAN [Concomitant]
     Active Substance: PIMOBENDAN
     Route: 065
  8. TORASEMIDE [Concomitant]
     Active Substance: TORSEMIDE
     Indication: CONGESTIVE CARDIOMYOPATHY
  9. ALDACTONE A [Concomitant]
     Active Substance: SPIRONOLACTONE
  10. UPTRAVI [Suspect]
     Active Substance: SELEXIPAG
     Indication: PULMONARY HYPERTENSION
     Route: 048
     Dates: start: 20200413, end: 20200611
  11. WARFARIN [Concomitant]
     Active Substance: WARFARIN
  12. APIXABAN [Concomitant]
     Active Substance: APIXABAN
     Indication: ATRIAL FIBRILLATION
  13. DIGOXIN. [Concomitant]
     Active Substance: DIGOXIN
     Indication: ATRIAL FIBRILLATION
  14. RACOL NF [Concomitant]
     Active Substance: AMINO ACIDS\DEXTROSE\ELECTROLYTES NOS\SOYBEAN OIL\VITAMINS

REACTIONS (2)
  - Left ventricular failure [Fatal]
  - Infection [Unknown]

NARRATIVE: CASE EVENT DATE: 20200504
